FAERS Safety Report 9216195 (Version 2)
Quarter: 2013Q2

REPORT INFORMATION
  Report Type: Spontaneous
  Country: GB (occurrence: None)
  Receive Date: 20130404
  Receipt Date: 20130410
  Transmission Date: 20140414
  Serious: Yes (Hospitalization, Other)
  Sender: FDA-Public Use
  Company Number: AUR-APL-2013-02673

PATIENT
  Age: 60 Year
  Sex: Female
  Weight: 54 kg

DRUGS (3)
  1. ALENDRONIC ACID [Suspect]
     Indication: OSTEOPOROSIS
     Dosage: (70 MG, 1 IN 1 WK), ORAL?
     Route: 048
     Dates: start: 20110321
  2. ADCAL-D3 [Concomitant]
  3. CITALOPRAM HYDROCHLORIDE [Concomitant]

REACTIONS (3)
  - Osteonecrosis of jaw [None]
  - Abscess jaw [None]
  - Malaise [None]
